FAERS Safety Report 6627049-2 (Version None)
Quarter: 2010Q1

REPORT INFORMATION
  Report Type: 
  Country: None (occurrence: None)
  Receive Date: 20100311
  Receipt Date: 20090608
  Transmission Date: 20100710
  Serious: No
  Sender: FDA-Public Use
  Company Number: A0789483A

PATIENT
  Age: 46 Year
  Sex: Male

DRUGS (2)
  1. NICORETTE [Suspect]
     Dates: start: 20090530
  2. NICODERM CQ [Suspect]

REACTIONS (3)
  - DRUG ADMINISTRATION ERROR [None]
  - GINGIVAL ULCERATION [None]
  - NICOTINE DEPENDENCE [None]
